FAERS Safety Report 8505789-8 (Version None)
Quarter: 2012Q3

REPORT INFORMATION
  Report Type: 
  Country: None (occurrence: None)
  Receive Date: 20120706
  Receipt Date: 20120706
  Transmission Date: 20120928
  Serious: Yes (Other)
  Sender: FDA-Public Use
  Company Number: None

PATIENT
  Age: 87 Year
  Sex: Female
  Weight: 57.7 kg

DRUGS (2)
  1. EXJADE [Suspect]
     Indication: LABORATORY TEST
     Dosage: 500 MG 1-2 TABS DAILY PO
     Route: 048
     Dates: start: 20111205
  2. EXJADE [Suspect]
     Indication: BLOOD IRON
     Dosage: 500 MG 1-2 TABS DAILY PO
     Route: 048
     Dates: start: 20111205

REACTIONS (1)
  - RENAL FAILURE ACUTE [None]
